FAERS Safety Report 24323927 (Version 1)
Quarter: 2024Q3

REPORT INFORMATION
  Report Type: Spontaneous
  Country: CO (occurrence: CO)
  Receive Date: 20240916
  Receipt Date: 20240916
  Transmission Date: 20241016
  Serious: Yes (Death, Other)
  Sender: REGENERON
  Company Number: CO-SA-2024SA263372

PATIENT
  Age: 72 Year
  Sex: Male

DRUGS (1)
  1. PRALUENT [Suspect]
     Active Substance: ALIROCUMAB
     Indication: Hypercholesterolaemia
     Dosage: 75 MG, QOW
     Route: 058

REACTIONS (4)
  - Arterial haemorrhage [Fatal]
  - Fall [Fatal]
  - Head injury [Fatal]
  - Pulse absent [Fatal]

NARRATIVE: CASE EVENT DATE: 20240726
